FAERS Safety Report 21012274 (Version 2)
Quarter: 2022Q3

REPORT INFORMATION
  Report Type: Spontaneous
  Country: CZ (occurrence: CZ)
  Receive Date: 20220627
  Receipt Date: 20220722
  Transmission Date: 20221027
  Serious: Yes (Other)
  Sender: FDA-Public Use
  Company Number: None

PATIENT
  Age: 9 Year
  Sex: Female
  Weight: 34 kg

DRUGS (2)
  1. MOMETASONE FUROATE [Suspect]
     Active Substance: MOMETASONE FUROATE
     Indication: Rhinitis allergic
     Dosage: 0.05 MG (ONCE IN THE MORNING, ONCE IN THE EVENING)
     Route: 055
  2. TOBREX [Concomitant]
     Active Substance: TOBRAMYCIN
     Indication: Conjunctivitis allergic
     Dosage: 3 MILLIGRAM PER MILLILITRE (1 DROP 5 TIMES A DAY FOR 7 WEEKS)
     Route: 047

REACTIONS (3)
  - Blindness unilateral [Recovered/Resolved]
  - Eye pain [Recovered/Resolved]
  - Vertigo [Recovered/Resolved]
